FAERS Safety Report 23159158 (Version 2)
Quarter: 2023Q4

REPORT INFORMATION
  Report Type: Spontaneous
  Country: EG (occurrence: EG)
  Receive Date: 20231108
  Receipt Date: 20231114
  Transmission Date: 20240110
  Serious: Yes (Death, Other)
  Sender: FDA-Public Use
  Company Number: EG-HIKMA PHARMACEUTICALS USA INC.-EG-H14001-23-66699

PATIENT
  Age: 38 Year
  Sex: Female

DRUGS (3)
  1. ETOPOSIDE [Suspect]
     Active Substance: ETOPOSIDE
     Indication: Uterine cancer
     Dosage: 255 MILLIGRAM, D1 ,3,5/EVERY 21 DAYS
     Route: 042
     Dates: start: 20231001
  2. IFOSFAMIDE [Suspect]
     Active Substance: IFOSFAMIDE
     Indication: Uterine cancer
     Dosage: 1 GRAM, D1 TO D5/EVERY 21 DAYS
     Route: 042
     Dates: start: 20231001
  3. MESNA [Suspect]
     Active Substance: MESNA
     Indication: Uterine cancer
     Dosage: 400 MILLIGRAM, D1 TO D5/EVERY 21 DAYS
     Route: 042
     Dates: start: 20231001

REACTIONS (5)
  - Hallucination [Fatal]
  - Disorientation [Fatal]
  - Vomiting [Fatal]
  - Blood creatinine increased [Fatal]
  - Anaemia [Fatal]

NARRATIVE: CASE EVENT DATE: 20231002
